FAERS Safety Report 21135715 (Version 1)
Quarter: 2022Q3

REPORT INFORMATION
  Report Type: Spontaneous
  Country: US (occurrence: US)
  Receive Date: 20220727
  Receipt Date: 20220727
  Transmission Date: 20221027
  Serious: No
  Sender: FDA-Public Use
  Company Number: US-BRISTOL-MYERS SQUIBB COMPANY-2022-080166

PATIENT
  Age: 89 Year
  Weight: 57.61 kg

DRUGS (5)
  1. REVLIMID [Suspect]
     Active Substance: LENALIDOMIDE
     Indication: Plasma cell myeloma
     Dosage: 1 CAPSULE DAILY FOR 14 DAYS ON, 7 OFF
     Route: 048
     Dates: start: 20220712
  2. DEXAMETHASONE [Concomitant]
     Active Substance: DEXAMETHASONE
     Route: 048
  3. ZOMETA [Concomitant]
     Active Substance: ZOLEDRONIC ACID
     Dosage: SOLUTION 4 MG/10
     Route: 042
  4. BORTEZOMIB [Concomitant]
     Active Substance: BORTEZOMIB
     Dosage: INJECTION SOLUTION RECON
     Route: 065
  5. METFORMINHYDROCHLORID [Concomitant]
     Route: 048

REACTIONS (2)
  - Abdominal pain upper [Not Recovered/Not Resolved]
  - Diarrhoea [Not Recovered/Not Resolved]
